FAERS Safety Report 4830165-9 (Version None)
Quarter: 2005Q4

REPORT INFORMATION
  Report Type: 
  Country: None (occurrence: None)
  Receive Date: 20051117
  Receipt Date: 20050930
  Transmission Date: 20060501
  Serious: Yes (Hospitalization, Other)
  Sender: FDA-Public Use
  Company Number: US-MERCK-0510USA01888

PATIENT
  Age: 49 Year
  Sex: Female
  Weight: 59 kg

DRUGS (16)
  1. VIOXX [Suspect]
     Indication: ARTHRITIS
     Route: 048
     Dates: start: 20000217, end: 20040101
  2. ALPRAZOLAM [Concomitant]
     Route: 065
  3. CELEBREX [Concomitant]
     Route: 065
  4. DEPAKOTE [Concomitant]
     Route: 065
  5. DIAZEPAM [Concomitant]
     Route: 065
  6. EFFEXOR XR [Concomitant]
     Route: 065
  7. FUROSEMIDE [Concomitant]
     Route: 065
  8. HYDROCODONE BITARTRATE + ACETAMINOPHEN [Concomitant]
     Route: 065
  9. NEURONTIN [Concomitant]
     Route: 065
  10. PREMARIN [Concomitant]
     Route: 065
  11. PREVACID [Concomitant]
     Route: 065
  12. SPORANOX [Concomitant]
     Route: 065
  13. ZOFRAN [Concomitant]
     Route: 065
  14. TRAZODONE HYDROCHLORIDE [Concomitant]
     Route: 065
  15. ASPIRIN [Concomitant]
     Route: 065
  16. [THERAPY UNSPECIFIED] [Concomitant]
     Route: 065

REACTIONS (4)
  - BACK DISORDER [None]
  - BLOOD DISORDER [None]
  - CATARACT [None]
  - ISCHAEMIC STROKE [None]
